FAERS Safety Report 10419473 (Version 2)
Quarter: 2014Q3

REPORT INFORMATION
  Report Type: Spontaneous
  Country: RU (occurrence: RU)
  Receive Date: 20140829
  Receipt Date: 20140910
  Transmission Date: 20150326
  Serious: Yes (Death)
  Sender: FDA-Public Use
  Company Number: RU-ASTRAZENECA-2014SE64162

PATIENT
  Age: 23464 Day
  Sex: Male
  Weight: 90 kg

DRUGS (8)
  1. EGILOK [Concomitant]
     Active Substance: METOPROLOL TARTRATE
     Indication: ACUTE CORONARY SYNDROME
     Dates: start: 20140815, end: 20140815
  2. CARDIASK [Concomitant]
     Active Substance: ASPIRIN
     Indication: ACUTE CORONARY SYNDROME
     Route: 048
     Dates: start: 20140815
  3. BRILINTA [Suspect]
     Active Substance: TICAGRELOR
     Indication: ACUTE MYOCARDIAL INFARCTION
     Route: 048
     Dates: start: 20140815, end: 20140815
  4. ARIXTRA [Concomitant]
     Active Substance: FONDAPARINUX SODIUM
     Indication: ACUTE CORONARY SYNDROME
     Route: 058
     Dates: start: 20140815, end: 20140816
  5. BRILINTA [Suspect]
     Active Substance: TICAGRELOR
     Indication: ACUTE MYOCARDIAL INFARCTION
     Route: 048
     Dates: start: 20140815
  6. ENALAPRIL [Concomitant]
     Active Substance: ENALAPRIL
     Indication: ACUTE CORONARY SYNDROME
     Dates: start: 20140815
  7. NITRATES AND ELECTROLYTES [Concomitant]
     Route: 041
     Dates: start: 20140815, end: 20140818
  8. EGILOK [Concomitant]
     Active Substance: METOPROLOL TARTRATE
     Indication: ACUTE CORONARY SYNDROME
     Dates: start: 20140816

REACTIONS (1)
  - Myocardial rupture [Fatal]

NARRATIVE: CASE EVENT DATE: 20140819
